FAERS Safety Report 21270438 (Version 2)
Quarter: 2022Q3

REPORT INFORMATION
  Report Type: Spontaneous
  Country: US (occurrence: US)
  Receive Date: 20220830
  Receipt Date: 20220929
  Transmission Date: 20221027
  Serious: No
  Sender: FDA-Public Use
  Company Number: US-PFIZER INC-202201099547

PATIENT
  Age: 66 Year
  Sex: Female
  Weight: 64.86 kg

DRUGS (3)
  1. PAXLOVID [Suspect]
     Active Substance: NIRMATRELVIR\RITONAVIR
     Indication: COVID-19 treatment
     Dosage: 3 DF, DAILY (150 (X2) 100 MG PK (EUA) TABLETS)
     Dates: start: 20220818, end: 20220822
  2. PREDNISONE [Concomitant]
     Active Substance: PREDNISONE
     Indication: Ear discomfort
     Dosage: 10 MG (10MG TABLET X 12 HIGH DOSE)
     Dates: start: 20220802, end: 20220814
  3. PREDNISONE [Concomitant]
     Active Substance: PREDNISONE
     Dosage: 60 MG

REACTIONS (4)
  - Therapeutic product effect incomplete [Recovering/Resolving]
  - Dysgeusia [Unknown]
  - COVID-19 [Recovering/Resolving]
  - Disease recurrence [Recovering/Resolving]

NARRATIVE: CASE EVENT DATE: 20220801
